FAERS Safety Report 5343745-1 (Version None)
Quarter: 2007Q2

REPORT INFORMATION
  Report Type: 
  Country: None (occurrence: None)
  Receive Date: 20070531
  Receipt Date: 20070516
  Transmission Date: 20071010
  Serious: Yes (Death)
  Sender: FDA-Public Use
  Company Number: AZAUS200700070

PATIENT
  Age: 78 Year
  Sex: Female
  Weight: 46.7 kg

DRUGS (8)
  1. AZACITIDINE (AZACITIDINE) (INJECTION) [Suspect]
     Indication: MYELODYSPLASTIC SYNDROME
     Dosage: SEE IMAGE
     Route: 058
     Dates: start: 20070103, end: 20070112
  2. AZACITIDINE (AZACITIDINE) (INJECTION) [Suspect]
     Indication: MYELODYSPLASTIC SYNDROME
     Dosage: SEE IMAGE
     Route: 058
     Dates: start: 20070129, end: 20070209
  3. ARICEPT [Concomitant]
  4. NEUPOGEN [Concomitant]
  5. FOSINOPRIL SODIUM [Concomitant]
  6. EXJADE (ALL OTHER THERAPEUTIC PRODUCTS) [Concomitant]
  7. TYLENOL [Concomitant]
  8. PROTONIX [Concomitant]

REACTIONS (15)
  - ABDOMINAL PAIN [None]
  - ATRIAL FIBRILLATION [None]
  - BLOOD CULTURE POSITIVE [None]
  - DISORIENTATION [None]
  - HAEMOGLOBIN DECREASED [None]
  - LETHARGY [None]
  - LUNG INFILTRATION [None]
  - MYOCARDIAL ISCHAEMIA [None]
  - NEUTROPENIA [None]
  - ORAL INTAKE REDUCED [None]
  - PLATELET COUNT DECREASED [None]
  - SEPTIC SHOCK [None]
  - SOMNOLENCE [None]
  - UNRESPONSIVE TO STIMULI [None]
  - WHITE BLOOD CELL COUNT DECREASED [None]
